FAERS Safety Report 15681257 (Version 2)
Quarter: 2019Q1

REPORT INFORMATION
  Report Type: Spontaneous
  Country: AU (occurrence: AU)
  Receive Date: 20181203
  Receipt Date: 20190329
  Transmission Date: 20190417
  Serious: Yes (Hospitalization)
  Sender: FDA-Public Use
  Company Number: AU-MYLANLABS-2018M1089607

PATIENT
  Age: 55 Year
  Sex: Male

DRUGS (1)
  1. CLOZARIL [Suspect]
     Active Substance: CLOZAPINE
     Indication: SCHIZOPHRENIA
     Dosage: 250 MILLIGRAM
     Route: 048
     Dates: start: 20080517

REACTIONS (3)
  - Lymphocyte count increased [Not Recovered/Not Resolved]
  - Hospitalisation [Unknown]
  - Red cell distribution width decreased [Unknown]

NARRATIVE: CASE EVENT DATE: 20180901
